FAERS Safety Report 4450968-2 (Version None)
Quarter: 2004Q3

REPORT INFORMATION
  Report Type: 
  Country: None (occurrence: None)
  Receive Date: 20040916
  Receipt Date: 20040223
  Transmission Date: 20050211
  Serious: Yes (Other)
  Sender: FDA-Public Use
  Company Number: US-BRISTOL-MYERS SQUIBB COMPANY-12514048

PATIENT
  Age: 25 Year
  Sex: Female

DRUGS (1)
  1. STADOL [Suspect]
     Route: 042
     Dates: start: 19941123

REACTIONS (3)
  - DEPENDENCE [None]
  - NORMAL NEWBORN [None]
  - PREGNANCY [None]
